FAERS Safety Report 9476774 (Version 1)
Quarter: 2013Q3

REPORT INFORMATION
  Report Type: Spontaneous
  Country: US (occurrence: US)
  Receive Date: 20130826
  Receipt Date: 20130826
  Transmission Date: 20140515
  Serious: No
  Sender: FDA-Public Use
  Company Number: US-BRISTOL-MYERS SQUIBB COMPANY-19064963

PATIENT
  Age: 26 Year
  Sex: Female
  Weight: 58.96 kg

DRUGS (2)
  1. KENALOG-40 INJ [Suspect]
     Indication: PROPHYLAXIS
     Dosage: SITE OF INJ: RIGHT CHEEK, RIGHT BELOW THE HIP BONE.
     Dates: start: 20130128
  2. BACTRIM [Concomitant]

REACTIONS (3)
  - Injection site discolouration [Unknown]
  - Injection site atrophy [Unknown]
  - Injection site pain [Unknown]
